FAERS Safety Report 13520378 (Version 1)
Quarter: 2017Q2

REPORT INFORMATION
  Report Type: Report from Study
  Country: US (occurrence: US)
  Receive Date: 20170507
  Receipt Date: 20170507
  Transmission Date: 20170830
  Serious: Yes (Hospitalization)
  Sender: FDA-Public Use
  Company Number: US-MYLANLABS-2017M1026707

PATIENT

DRUGS (8)
  1. ZOFRAN [Concomitant]
     Active Substance: ONDANSETRON HYDROCHLORIDE
     Indication: PRODUCT USED FOR UNKNOWN INDICATION
     Dosage: 4 MG, UNK
     Dates: start: 20170115
  2. BACTRIM [Concomitant]
     Active Substance: SULFAMETHOXAZOLE\TRIMETHOPRIM
     Indication: PRODUCT USED FOR UNKNOWN INDICATION
     Dosage: 400-80 MG
     Dates: start: 20170220
  3. CAFCIT [Concomitant]
     Active Substance: CAFFEINE CITRATE
     Indication: PRODUCT USED FOR UNKNOWN INDICATION
     Dosage: UNK
     Dates: start: 20170201
  4. VINCRISTINE [Suspect]
     Active Substance: VINCRISTINE
     Indication: ACUTE LYMPHOCYTIC LEUKAEMIA
     Dosage: 1.8 MG, ONCE
     Route: 042
  5. MERCAPTOPURINE. [Suspect]
     Active Substance: MERCAPTOPURINE
     Indication: ACUTE LYMPHOCYTIC LEUKAEMIA
     Dosage: 75 MG (MONDAY-SATURDAY); 50 MG (SUNDAY)
     Route: 048
     Dates: start: 20170220
  6. INVESTIGATIONAL DRUG [Suspect]
     Active Substance: INVESTIGATIONAL PRODUCT
     Indication: ACUTE LYMPHOCYTIC LEUKAEMIA
     Dosage: 25 MG, BID
     Route: 048
     Dates: start: 20170220
  7. METHOTREXATE. [Suspect]
     Active Substance: METHOTREXATE
     Indication: ACUTE LYMPHOCYTIC LEUKAEMIA
     Dosage: 15 MG, ONCE
     Route: 037
     Dates: start: 20170313
  8. CAFFEINE. [Concomitant]
     Active Substance: CAFFEINE
     Indication: PRODUCT USED FOR UNKNOWN INDICATION
     Dosage: UNK
     Dates: start: 20170201

REACTIONS (3)
  - Fatigue [Unknown]
  - Anaemia [Recovered/Resolved]
  - Tachycardia [Recovered/Resolved]

NARRATIVE: CASE EVENT DATE: 20170318
